FAERS Safety Report 6329982-8 (Version None)
Quarter: 2009Q3

REPORT INFORMATION
  Report Type: 
  Country: None (occurrence: None)
  Receive Date: 20090825
  Receipt Date: 20090814
  Transmission Date: 20100115
  Serious: Yes (Disabling)
  Sender: FDA-Public Use
  Company Number: GXKR2009GB09224

PATIENT
  Age: 49 Year
  Sex: Female
  Weight: 75 kg

DRUGS (9)
  1. MIRTAZAPINE [Suspect]
     Indication: ANXIETY
     Dosage: 30 MG, ORAL; 15 MG, ORAL
     Route: 048
     Dates: start: 20090617, end: 20090626
  2. MIRTAZAPINE [Suspect]
     Indication: DEPRESSION
     Dosage: 30 MG, ORAL; 15 MG, ORAL
     Route: 048
     Dates: start: 20090617, end: 20090626
  3. AMOXICILLIN [Concomitant]
  4. CITALOPRAM HYDROBROMIDE [Concomitant]
  5. CODEINE PHOSPHATE (CODEINE PHOSPHATE) [Concomitant]
  6. DIAZEPAM [Concomitant]
  7. FLUCONAZOLE [Concomitant]
  8. METRONIDAZOLE [Concomitant]
  9. RANITIDINE [Concomitant]

REACTIONS (6)
  - DISORIENTATION [None]
  - DYSPHAGIA [None]
  - HYPOAESTHESIA [None]
  - HYPOKINESIA [None]
  - JOINT SWELLING [None]
  - OEDEMA PERIPHERAL [None]
